FAERS Safety Report 8523830-3 (Version None)
Quarter: 2012Q3

REPORT INFORMATION
  Report Type: 
  Country: None (occurrence: None)
  Receive Date: 20120720
  Receipt Date: 20120716
  Transmission Date: 20120928
  Serious: Yes (Hospitalization, Other)
  Sender: FDA-Public Use
  Company Number: US-PFIZER INC-2012170784

PATIENT
  Sex: Female
  Weight: 22.72 kg

DRUGS (3)
  1. ACETYLSALICYLIC ACID [Concomitant]
  2. REVATIO [Suspect]
  3. REMODULIN [Suspect]
     Indication: PULMONARY ARTERIAL HYPERTENSION
     Dosage: 109.44 UG/KG, (0.076 NG/KG/MIN)
     Route: 042
     Dates: start: 20090501

REACTIONS (1)
  - COLOSTOMY [None]
